FAERS Safety Report 15904668 (Version 1)
Quarter: 2019Q1

REPORT INFORMATION
  Report Type: Report from Study
  Country: None (occurrence: BR)
  Receive Date: 20190204
  Receipt Date: 20190204
  Transmission Date: 20190417
  Serious: Yes (Other)
  Sender: FDA-Public Use
  Company Number: BR-ABBVIE-17K-020-2069316-00

PATIENT
  Sex: Female
  Weight: 67 kg

DRUGS (11)
  1. ALOE FEROX [Concomitant]
     Indication: LIVER DISORDER
  2. RHEUM RHABARBARUM [Concomitant]
     Indication: LIVER DISORDER
  3. COMMIPHORA MYRRHA [Concomitant]
     Indication: LIVER DISORDER
  4. MAGNESIUM CHLORIDE. [Concomitant]
     Active Substance: MAGNESIUM CHLORIDE
     Indication: RHEUMATOID ARTHRITIS
  5. CINNAMOMUM VERUM BARK [Concomitant]
     Active Substance: CINNAMON
     Indication: LIVER DISORDER
  6. HUMIRA [Suspect]
     Active Substance: ADALIMUMAB
     Indication: RHEUMATOID ARTHRITIS
     Route: 058
     Dates: start: 20150714, end: 2018
  7. FOLIC ACID. [Concomitant]
     Active Substance: FOLIC ACID
     Indication: PRODUCT USED FOR UNKNOWN INDICATION
  8. ANGELICA SINENSIS [Concomitant]
     Active Substance: ANGELICA SINENSIS ROOT
     Indication: LIVER DISORDER
  9. ALPINIA GALANGA [Concomitant]
     Indication: LIVER DISORDER
  10. LABIRIN [Concomitant]
     Active Substance: BETAHISTINE
     Indication: LABYRINTHITIS
  11. GENTIANA [Concomitant]
     Indication: LIVER DISORDER

REACTIONS (8)
  - Anxiety [Unknown]
  - Stress [Unknown]
  - Agitation [Unknown]
  - Fall [Unknown]
  - Nausea [Unknown]
  - Dementia Alzheimer^s type [Not Recovered/Not Resolved]
  - Dizziness [Not Recovered/Not Resolved]
  - Contusion [Recovered/Resolved]

NARRATIVE: CASE EVENT DATE: 2015
